FAERS Safety Report 10276815 (Version 3)
Quarter: 2014Q4

REPORT INFORMATION
  Report Type: Spontaneous
  Country: US (occurrence: None)
  Receive Date: 20140701
  Receipt Date: 20141023
  Transmission Date: 20150528
  Serious: Yes (Death, Life-Threatening, Hospitalization)
  Sender: FDA-Public Use
  Company Number: 20140350

PATIENT
  Age: 73 Year
  Sex: Male
  Weight: 65 kg

DRUGS (27)
  1. FRESENIS 2008K HEMODIALYSIS MACHINE [Suspect]
     Active Substance: DEVICE
  2. COLACE (DOCUATE SODIUM) [Concomitant]
  3. NEPHROVITE (MULTIVITAMINS WITH IRON) [Concomitant]
  4. NORVASC (AMLODIPINE) [Concomitant]
  5. VERSED (MIDAZOLAM) [Concomitant]
  6. ENALAPRIL [Concomitant]
     Active Substance: ENALAPRIL
  7. HEPARIN [Concomitant]
     Active Substance: HEPARIN SODIUM
  8. ASPIRIN. [Concomitant]
     Active Substance: ASPIRIN
  9. METOPROLOL [Concomitant]
     Active Substance: METOPROLOL
  10. ATROVENT (IPRATROPIUM BROMIDE) [Concomitant]
  11. RENAGEL (SEVELAMIER) [Concomitant]
  12. SENAKOT (SENNOSIDES) [Concomitant]
  13. TYLENOL [Concomitant]
     Active Substance: ACETAMINOPHEN
  14. SODIUM CHLORIDE. [Concomitant]
     Active Substance: SODIUM CHLORIDE
  15. DILAUDID (HYDROMOPHONE) [Concomitant]
  16. AMIODARONE [Concomitant]
     Active Substance: AMIODARONE
  17. ALBUTEROL. [Concomitant]
     Active Substance: ALBUTEROL
  18. VENOFER [Suspect]
     Active Substance: IRON SUCROSE
     Indication: CHRONIC KIDNEY DISEASE
     Dosage: 50 MG IVP @ 12:23PM;  INTRAVENOUS
     Route: 042
     Dates: start: 20120601
  19. PRILOSEC (OMEPRAZOLE) [Concomitant]
     Active Substance: OMEPRAZOLE MAGNESIUM
  20. VASOTEC (ENALAPRIL) [Concomitant]
  21. FOLIC ACID. [Concomitant]
     Active Substance: FOLIC ACID
  22. GRANUFLO [Suspect]
     Active Substance: ACETIC ACID\SODIUM ACETATE
     Indication: PRODUCT USED FOR UNKNOWN INDICATION
  23. NATURALYTE [Suspect]
     Active Substance: ACETIC ACID\SODIUM ACETATE
     Indication: PRODUCT USED FOR UNKNOWN INDICATION
  24. PROTONIX (PANTOPRAZOLE) [Concomitant]
  25. INSULIN [Concomitant]
     Active Substance: INSULIN NOS
  26. ALLOPURINOL. [Concomitant]
     Active Substance: ALLOPURINOL
  27. DIPRIVAN (PROPOFOL) [Concomitant]

REACTIONS (17)
  - Cardio-respiratory arrest [None]
  - Procedural complication [None]
  - Cardiac failure congestive [None]
  - Hypokalaemia [None]
  - Failure to thrive [None]
  - Pupil fixed [None]
  - Haematocrit decreased [None]
  - Ventricular arrhythmia [None]
  - Unresponsive to stimuli [None]
  - Ventricular tachycardia [None]
  - Apparent life threatening event [None]
  - Fluid overload [None]
  - Pneumonia [None]
  - Haemodialysis [None]
  - Loss of consciousness [None]
  - Electrolyte imbalance [None]
  - Haemoglobin decreased [None]

NARRATIVE: CASE EVENT DATE: 20120601
